FAERS Safety Report 25712545 (Version 1)
Quarter: 2025Q3

REPORT INFORMATION
  Report Type: Spontaneous
  Country: GB (occurrence: GB)
  Receive Date: 20250821
  Receipt Date: 20250821
  Transmission Date: 20251020
  Serious: Yes (Other)
  Sender: MYLAN
  Company Number: GB-MYLANLABS-2025M1071132

PATIENT
  Age: 39 Year
  Sex: Male
  Weight: 105.8 kg

DRUGS (2)
  1. CLOZARIL [Suspect]
     Active Substance: CLOZAPINE
     Indication: Schizophrenia
     Dosage: 200 MILLIGRAM, QD (DAILY AT NIGHT)
     Dates: start: 20180815, end: 20240919
  2. CLOZARIL [Suspect]
     Active Substance: CLOZAPINE

REACTIONS (7)
  - Thrombocytosis [Unknown]
  - Eosinophilia [Unknown]
  - Differential white blood cell count abnormal [Unknown]
  - White blood cell count increased [Unknown]
  - Influenza like illness [Unknown]
  - Anaemia [Unknown]
  - Therapy interrupted [Unknown]

NARRATIVE: CASE EVENT DATE: 20240919
